FAERS Safety Report 20547494 (Version 1)
Quarter: 2022Q1

REPORT INFORMATION
  Report Type: Spontaneous
  Country: US (occurrence: None)
  Receive Date: 20220303
  Receipt Date: 20220303
  Transmission Date: 20220423
  Serious: Yes (Other)
  Sender: FDA-Public Use
  Company Number: 2022A084685

PATIENT
  Age: 63 Year
  Sex: Male

DRUGS (1)
  1. BRILINTA [Suspect]
     Active Substance: TICAGRELOR
     Indication: Stent placement
     Dosage: UNKNOWN
     Route: 048
     Dates: start: 20220201

REACTIONS (8)
  - Anxiety [Recovering/Resolving]
  - Claustrophobia [Recovering/Resolving]
  - Feeling hot [Unknown]
  - Middle insomnia [Recovering/Resolving]
  - Epistaxis [Recovered/Resolved]
  - Product dose omission issue [Unknown]
  - Drug ineffective [Unknown]
  - Product use issue [Unknown]

NARRATIVE: CASE EVENT DATE: 20220201
